FAERS Safety Report 16178389 (Version 1)
Quarter: 2019Q2

REPORT INFORMATION
  Report Type: Spontaneous
  Country: US (occurrence: US)
  Receive Date: 20190410
  Receipt Date: 20190410
  Transmission Date: 20190711
  Serious: No
  Sender: FDA-Public Use
  Company Number: US-ASTRAZENECA-2019SE41709

PATIENT
  Sex: Female
  Weight: 54.4 kg

DRUGS (1)
  1. TUDORZA PRESSAIR [Suspect]
     Active Substance: ACLIDINIUM BROMIDE
     Indication: COUGH
     Dosage: 400.0UG UNKNOWN
     Route: 055

REACTIONS (6)
  - Off label use [Unknown]
  - Device malfunction [Unknown]
  - Product use in unapproved indication [Unknown]
  - Product dose omission [Unknown]
  - Cough [Unknown]
  - Hypoacusis [Unknown]
